FAERS Safety Report 4498083-6 (Version None)
Quarter: 2004Q3

REPORT INFORMATION
  Report Type: 
  Country: None (occurrence: None)
  Receive Date: 20040927
  Receipt Date: 20040727
  Transmission Date: 20050211
  Serious: No
  Sender: FDA-Public Use
  Company Number: USA040773776

PATIENT
  Age: 11 Year
  Sex: Male
  Weight: 42 kg

DRUGS (3)
  1. STRATTERA [Suspect]
     Indication: ATTENTION DEFICIT/HYPERACTIVITY DISORDER
     Dosage: 60 MG
     Dates: start: 20040601
  2. ADDERALL 10 [Concomitant]
  3. ALBUTEROL [Concomitant]

REACTIONS (9)
  - ANXIETY [None]
  - DEPRESSION [None]
  - DIZZINESS [None]
  - FATIGUE [None]
  - INSOMNIA [None]
  - MOOD SWINGS [None]
  - PANIC ATTACK [None]
  - VISION BLURRED [None]
  - WEIGHT DECREASED [None]
